FAERS Safety Report 16886687 (Version 1)
Quarter: 2019Q4

REPORT INFORMATION
  Report Type: Spontaneous
  Country: US (occurrence: US)
  Receive Date: 20191004
  Receipt Date: 20191004
  Transmission Date: 20200122
  Serious: Yes (Other)
  Sender: FDA-Public Use
  Company Number: US-ASTRAZENECA-2019SF38851

PATIENT
  Age: 44 Year
  Sex: Female
  Weight: 131.5 kg

DRUGS (3)
  1. BYDUREON BCISE [Suspect]
     Active Substance: EXENATIDE
     Indication: DIABETES MELLITUS
     Route: 058
     Dates: start: 2014
  2. FARXIGA [Suspect]
     Active Substance: DAPAGLIFLOZIN PROPANEDIOL
     Indication: DIABETES MELLITUS
     Route: 048
  3. BYETTA [Suspect]
     Active Substance: EXENATIDE
     Indication: DIABETES MELLITUS
     Route: 065

REACTIONS (11)
  - Intentional product misuse [Unknown]
  - Weight increased [Unknown]
  - Spinal stenosis [Unknown]
  - Insomnia [Unknown]
  - Pain [Unknown]
  - Fall [Unknown]
  - Dementia with Lewy bodies [Unknown]
  - Immunodeficiency [Unknown]
  - Hypometabolism [Unknown]
  - Weight decreased [Unknown]
  - Incontinence [Unknown]

NARRATIVE: CASE EVENT DATE: 1995
